FAERS Safety Report 23702246 (Version 1)
Quarter: 2024Q2

REPORT INFORMATION
  Report Type: Spontaneous
  Country: US (occurrence: US)
  Receive Date: 20240403
  Receipt Date: 20240403
  Transmission Date: 20240716
  Serious: No
  Sender: FDA-Public Use
  Company Number: US-SA-SAC20240401001103

PATIENT
  Age: 78 Year
  Sex: Male
  Weight: 81.646 kg

DRUGS (1)
  1. DUPIXENT [Suspect]
     Active Substance: DUPILUMAB
     Indication: Asthma
     Dosage: 300 MG, QOW
     Route: 058
     Dates: start: 20231220

REACTIONS (4)
  - Nasopharyngitis [Unknown]
  - Sinus congestion [Unknown]
  - Rhinorrhoea [Unknown]
  - Cough [Unknown]
